FAERS Safety Report 9840860 (Version 1)
Quarter: 2013Q4

REPORT INFORMATION
  Report Type: Spontaneous
  Country: US (occurrence: None)
  Receive Date: 20131212
  Receipt Date: 20131212
  Transmission Date: 20140711
  Serious: Yes (Hospitalization)
  Sender: FDA-Public Use
  Company Number: 20130122CINRY3874

PATIENT
  Age: 48 Year
  Sex: Female

DRUGS (1)
  1. CINRYZE [Suspect]
     Indication: HEREDITARY ANGIOEDEMA
     Dosage: UNKNOWN, (UNIT), INTRAVENOUS
     Route: 042

REACTIONS (2)
  - Hereditary angioedema [None]
  - Drug tolerance [None]
